FAERS Safety Report 16494624 (Version 2)
Quarter: 2019Q4

REPORT INFORMATION
  Report Type: Spontaneous
  Country: US (occurrence: US)
  Receive Date: 20190628
  Receipt Date: 20191029
  Transmission Date: 20200122
  Serious: No
  Sender: FDA-Public Use
  Company Number: US-SA-2019SA174937

PATIENT
  Sex: Male

DRUGS (3)
  1. DUPIXENT [Suspect]
     Active Substance: DUPILUMAB
     Indication: DERMATITIS
     Dosage: 300 MG, QOW
     Route: 058
  2. DUPIXENT [Suspect]
     Active Substance: DUPILUMAB
     Indication: DERMATITIS
  3. DUPIXENT [Suspect]
     Active Substance: DUPILUMAB
     Indication: ECZEMA

REACTIONS (7)
  - Sleep disorder [Unknown]
  - Skin exfoliation [Unknown]
  - Peripheral swelling [Unknown]
  - Lip swelling [Unknown]
  - Eye swelling [Unknown]
  - Pruritus [Unknown]
  - Skin fissures [Unknown]

NARRATIVE: CASE EVENT DATE: 201906
